FAERS Safety Report 6192732-2 (Version None)
Quarter: 2009Q2

REPORT INFORMATION
  Report Type: 
  Country: None (occurrence: None)
  Receive Date: 20090518
  Receipt Date: 20090513
  Transmission Date: 20091009
  Serious: Yes (Other)
  Sender: FDA-Public Use
  Company Number: CH-BRISTOL-MYERS SQUIBB COMPANY-14600258

PATIENT
  Age: 47 Year
  Sex: Male

DRUGS (3)
  1. PLATINOL [Suspect]
     Indication: TESTIS CANCER
     Dosage: RECEIVED ON 20JAN09,21,22,23 AND 24JAN09, AND ON 10FEB09, 11, 12, 13, AND 14FEB09  CHARGE:8A44362
     Route: 042
     Dates: start: 20090210, end: 20090214
  2. ETOPOPHOS PRESERVATIVE FREE [Suspect]
     Indication: TESTIS CANCER
     Dosage: STARTED ON 10FEB09
     Route: 042
     Dates: start: 20090210, end: 20090214
  3. BLEOMYCIN SULFATE [Suspect]
     Indication: TESTIS CANCER
     Dosage: INITIAL DOSE 10FEB;17FEB DF=30000U
     Route: 042
     Dates: start: 20090210, end: 20090224

REACTIONS (1)
  - THROMBOSIS [None]
